FAERS Safety Report 25472606 (Version 1)
Quarter: 2025Q2

REPORT INFORMATION
  Report Type: Spontaneous
  Country: US (occurrence: None)
  Receive Date: 20250616
  Receipt Date: 20250616
  Transmission Date: 20250716
  Serious: Yes (Other)
  Sender: FDA-CTU
  Company Number: None

PATIENT
  Age: 1 Day
  Sex: Female

DRUGS (1)
  1. TPN [Suspect]
     Active Substance: AMINO ACIDS\DEXTROSE\ELECTROLYTES NOS\SOYBEAN OIL
     Dosage: FREQUENCY : DAILY;?
     Route: 042
     Dates: end: 20250114

REACTIONS (3)
  - Product preparation error [None]
  - Blood sodium increased [None]
  - Blood chloride increased [None]

NARRATIVE: CASE EVENT DATE: 20250613
